FAERS Safety Report 14090606 (Version 1)
Quarter: 2017Q4

REPORT INFORMATION
  Report Type: Spontaneous
  Country: US (occurrence: US)
  Receive Date: 20171015
  Receipt Date: 20171015
  Transmission Date: 20180321
  Serious: No
  Sender: FDA-Public Use
  Company Number: US-SA-2017SA133251

PATIENT
  Age: 46 Year
  Sex: Male

DRUGS (8)
  1. CALCIUM [Concomitant]
     Active Substance: CALCIUM
  2. MYRBETRIQ [Concomitant]
     Active Substance: MIRABEGRON
  3. ALEVE [Concomitant]
     Active Substance: NAPROXEN SODIUM
  4. AUBAGIO [Suspect]
     Active Substance: TERIFLUNOMIDE
     Indication: MULTIPLE SCLEROSIS
     Route: 048
  5. BACLOFEN. [Concomitant]
     Active Substance: BACLOFEN
  6. TAMSULOSIN HYDROCHLORIDE. [Concomitant]
     Active Substance: TAMSULOSIN HYDROCHLORIDE
  7. VITAMIN D3 [Concomitant]
     Active Substance: CHOLECALCIFEROL
  8. ADVIL [Concomitant]
     Active Substance: IBUPROFEN

REACTIONS (2)
  - Dizziness [Unknown]
  - Muscular weakness [Unknown]
